FAERS Safety Report 19173506 (Version 1)
Quarter: 2021Q2

REPORT INFORMATION
  Report Type: Spontaneous
  Country: US (occurrence: US)
  Receive Date: 20210423
  Receipt Date: 20210423
  Transmission Date: 20210717
  Serious: No
  Sender: FDA-Public Use
  Company Number: NVSC2021US092080

PATIENT

DRUGS (1)
  1. VOLTAREN [Suspect]
     Active Substance: DICLOFENAC SODIUM
     Indication: BACK PAIN
     Dosage: UNK
     Route: 065

REACTIONS (8)
  - Eye pruritus [Unknown]
  - Drug hypersensitivity [Unknown]
  - Lip pruritus [Unknown]
  - Rash [Unknown]
  - Eye swelling [Unknown]
  - Lacrimation increased [Unknown]
  - Lip swelling [Unknown]
  - Emergency care examination [Unknown]
